FAERS Safety Report 13382184 (Version 1)
Quarter: 2017Q1

REPORT INFORMATION
  Report Type: Report from Study
  Country: JP (occurrence: JP)
  Receive Date: 20170329
  Receipt Date: 20170329
  Transmission Date: 20170429
  Serious: Yes (Death, Hospitalization)
  Sender: FDA-Public Use
  Company Number: PHHY2011JP127295

PATIENT
  Age: 68 Year
  Sex: Female
  Weight: 49 kg

DRUGS (7)
  1. URSO [Concomitant]
     Active Substance: URSODIOL
     Indication: HEPATIC CIRRHOSIS
     Route: 048
     Dates: start: 20081215, end: 20100422
  2. TYKERB [Suspect]
     Active Substance: LAPATINIB DITOSYLATE
     Indication: BREAST CANCER
     Dosage: 1250 MG,
     Route: 048
     Dates: start: 20100401, end: 20100407
  3. KANAMYCIN [Concomitant]
     Active Substance: KANAMYCIN\KANAMYCIN A SULFATE
     Indication: HEPATIC CIRRHOSIS
     Route: 048
     Dates: start: 20081215, end: 20100422
  4. ALDACTONE A [Concomitant]
     Active Substance: SPIRONOLACTONE
     Indication: ASCITES
     Route: 048
     Dates: start: 20081215, end: 20100422
  5. RINDERON V [Concomitant]
     Active Substance: BETAMETHASONE VALERATE
     Indication: BRAIN OEDEMA
     Route: 048
     Dates: start: 20100310, end: 20100422
  6. XELODA [Suspect]
     Active Substance: CAPECITABINE
     Indication: PRODUCT USED FOR UNKNOWN INDICATION
     Dosage: 600 MG,
     Route: 048
     Dates: start: 20100401, end: 20100404
  7. XELODA [Suspect]
     Active Substance: CAPECITABINE
     Dosage: 1200 MG,
     Route: 048
     Dates: start: 20100405, end: 20100408

REACTIONS (1)
  - Hepatic failure [Fatal]

NARRATIVE: CASE EVENT DATE: 20100408
